FAERS Safety Report 21667723 (Version 1)
Quarter: 2022Q4

REPORT INFORMATION
  Report Type: Spontaneous
  Country: None (occurrence: US)
  Receive Date: 20221201
  Receipt Date: 20221201
  Transmission Date: 20230112
  Serious: No
  Sender: FDA-Public Use
  Company Number: US-Mission Pharmacal Company-2135427

PATIENT
  Age: 53 Year
  Sex: Male

DRUGS (3)
  1. UROCIT-K [Suspect]
     Active Substance: POTASSIUM CITRATE
     Indication: Cystinuria
     Route: 048
  2. GENERIC TIOPRONIN [Concomitant]
  3. SERTRALINE HYDROCHLORIDE [Concomitant]
     Active Substance: SERTRALINE HYDROCHLORIDE

REACTIONS (3)
  - Gastrointestinal disorder [Unknown]
  - Rash [Recovered/Resolved]
  - Product substitution issue [None]
